FAERS Safety Report 11410810 (Version 1)
Quarter: 2015Q3

REPORT INFORMATION
  Report Type: Spontaneous
  Country: US (occurrence: US)
  Receive Date: 20150821
  Receipt Date: 20150821
  Transmission Date: 20151125
  Serious: No
  Sender: FDA-Public Use
  Company Number: US-ELI_LILLY_AND_COMPANY-US200910001709

PATIENT
  Sex: Male

DRUGS (7)
  1. HUMULIN 70/30 [Suspect]
     Active Substance: INSULIN HUMAN
     Dosage: 50 U, UNK
     Dates: start: 20091004
  2. TENORMIN [Concomitant]
     Active Substance: ATENOLOL
  3. XANAX [Concomitant]
     Active Substance: ALPRAZOLAM
  4. HUMULIN R [Suspect]
     Active Substance: INSULIN HUMAN
     Dosage: UNK, UNK
  5. NEUROTON [Concomitant]
  6. METHADONE [Concomitant]
     Active Substance: METHADONE HYDROCHLORIDE
  7. HUMULIN R [Suspect]
     Active Substance: INSULIN HUMAN
     Dosage: 30 U, UNK
     Dates: start: 20091007, end: 20091007

REACTIONS (4)
  - Treatment noncompliance [Unknown]
  - Blood glucose increased [Not Recovered/Not Resolved]
  - Glycosylated haemoglobin increased [Not Recovered/Not Resolved]
  - Drug ineffective [Not Recovered/Not Resolved]

NARRATIVE: CASE EVENT DATE: 200909
